FAERS Safety Report 14591347 (Version 1)
Quarter: 2018Q1

REPORT INFORMATION
  Report Type: Spontaneous
  Country: US (occurrence: US)
  Receive Date: 20180302
  Receipt Date: 20180302
  Transmission Date: 20180509
  Serious: No
  Sender: FDA-Public Use
  Company Number: US-NOVOPROD-526362

PATIENT
  Age: 47 Year
  Sex: Male

DRUGS (1)
  1. VICTOZA [Suspect]
     Active Substance: LIRAGLUTIDE
     Indication: GLUCOSE TOLERANCE IMPAIRED
     Dosage: 3 MG, QD
     Route: 058

REACTIONS (7)
  - Product use issue [Unknown]
  - Blood testosterone decreased [Recovered/Resolved]
  - Illness anxiety disorder [Unknown]
  - Off label use [Unknown]
  - Dysphagia [Recovered/Resolved]
  - Thyroid hormones increased [Recovered/Resolved]
  - Sensation of foreign body [Recovered/Resolved]

NARRATIVE: CASE EVENT DATE: 2016
